FAERS Safety Report 12688729 (Version 1)
Quarter: 2016Q3

REPORT INFORMATION
  Report Type: Spontaneous
  Country: US (occurrence: US)
  Receive Date: 20160826
  Receipt Date: 20160826
  Transmission Date: 20161109
  Serious: No
  Sender: FDA-Public Use
  Company Number: US-ELI_LILLY_AND_COMPANY-US201608011108

PATIENT
  Sex: Female

DRUGS (5)
  1. ADCIRCA [Suspect]
     Active Substance: TADALAFIL
     Indication: PRODUCT USED FOR UNKNOWN INDICATION
     Dosage: UNK, UNKNOWN
     Route: 065
  2. TRACLEER [Concomitant]
     Active Substance: BOSENTAN
  3. LASIX [Concomitant]
     Active Substance: FUROSEMIDE
  4. VENTAVIS [Concomitant]
     Active Substance: ILOPROST
  5. REMODULIN [Suspect]
     Active Substance: TREPROSTINIL
     Indication: PULMONARY ARTERIAL HYPERTENSION
     Dosage: 0.015UG/KG
     Route: 065
     Dates: start: 20160518

REACTIONS (1)
  - Administration site swelling [Recovered/Resolved]
